FAERS Safety Report 5289502-6 (Version None)
Quarter: 2007Q2

REPORT INFORMATION
  Report Type: 
  Country: None (occurrence: None)
  Receive Date: 20070406
  Receipt Date: 20070326
  Transmission Date: 20071010
  Serious: Yes (Hospitalization, Other)
  Sender: FDA-Public Use
  Company Number: PHBS2007BR05434

PATIENT
  Sex: Female
  Weight: 60 kg

DRUGS (4)
  1. EXELON [Suspect]
     Indication: DEMENTIA ALZHEIMER'S TYPE
     Dosage: 1.5 MG/DAY
     Route: 048
  2. EXELON [Suspect]
     Dosage: 4.5 MG, BID
     Route: 048
  3. MEMANTINE HCL [Concomitant]
     Dosage: 10 MG/DAY
     Route: 065
  4. VITAMIN B COMPLEX CAP [Concomitant]
     Dosage: UNKNOWN
     Route: 065

REACTIONS (6)
  - BALANCE DISORDER [None]
  - CEREBROVASCULAR ACCIDENT [None]
  - COMPUTERISED TOMOGRAM ABNORMAL [None]
  - DRUG TOXICITY [None]
  - POOR PERSONAL HYGIENE [None]
  - URINARY TRACT INFECTION [None]
